FAERS Safety Report 6557282-X (Version None)
Quarter: 2010Q1

REPORT INFORMATION
  Report Type: 
  Country: None (occurrence: None)
  Receive Date: 20100129
  Receipt Date: 20100121
  Transmission Date: 20100710
  Serious: Yes (Hospitalization, Other)
  Sender: FDA-Public Use
  Company Number: US-BIOGENIDEC-2010BI002203

PATIENT
  Age: 44 Year
  Sex: Male
  Weight: 74 kg

DRUGS (2)
  1. AVONEX [Suspect]
     Indication: MULTIPLE SCLEROSIS
     Route: 030
     Dates: start: 20010101
  2. AVONEX [Suspect]
     Route: 030
     Dates: start: 20040312

REACTIONS (5)
  - DEPRESSION [None]
  - EPISTAXIS [None]
  - HEPATITIS C [None]
  - HYPERTENSION [None]
  - INSOMNIA [None]
